FAERS Safety Report 9394379 (Version 2)
Quarter: 2013Q3

REPORT INFORMATION
  Report Type: Spontaneous
  Country: US (occurrence: US)
  Receive Date: 20130711
  Receipt Date: 20130804
  Transmission Date: 20140515
  Serious: No
  Sender: FDA-Public Use
  Company Number: US-B.I. PHARMACEUTICALS,INC./RIDGEFIELD-2013-BI-18151BP

PATIENT
  Age: 71 Year
  Sex: Female
  Weight: 50 kg

DRUGS (11)
  1. COMBIVENT [Suspect]
     Indication: CHRONIC OBSTRUCTIVE PULMONARY DISEASE
     Dosage: STRENGTH: 20 MCG / 100 MCG, DAILY DOSE: 80 MCG/ 400MCG
     Route: 055
     Dates: start: 20130614
  2. CATAPRES [Suspect]
     Indication: HYPERTENSION
     Route: 048
     Dates: start: 2013
  3. CAPTOPRIL [Concomitant]
     Indication: HYPERTENSION
     Dosage: 2.5 MG
     Route: 048
  4. CAPTOPRIL [Concomitant]
     Dosage: 25 MG
  5. LASIX [Concomitant]
     Dosage: 80 MG
     Route: 048
  6. POTASSIUM [Concomitant]
     Dosage: 120 MEQ
     Route: 048
  7. OXYGEN [Concomitant]
     Dosage: 2 LITERS  REST/3 LITERS ON EXERTION AS DIRECTED
  8. ZAROXOLYN [Concomitant]
     Dosage: 0.119 MG
  9. K-DUR 20 [Concomitant]
     Dosage: 13.3333 MEQ
  10. COMBIVENT [Concomitant]
     Dosage: 103 MCQ-18MCG/INH MISCELLANEOUS UNSPECIFIED TAKE 2 PUFF(S) FOUR TIMES ADAY INHALED
  11. CLONIDINE [Concomitant]
     Dosage: 0.1 MG

REACTIONS (2)
  - Dyspnoea [Not Recovered/Not Resolved]
  - Cough [Not Recovered/Not Resolved]
